FAERS Safety Report 6153183-X (Version None)
Quarter: 2009Q2

REPORT INFORMATION
  Report Type: 
  Country: None (occurrence: None)
  Receive Date: 20090409
  Receipt Date: 20090330
  Transmission Date: 20091009
  Serious: Yes (Hospitalization)
  Sender: FDA-Public Use
  Company Number: GXKR2009KW04020

PATIENT
  Age: 20 Year
  Sex: Female
  Weight: 27 kg

DRUGS (1)
  1. METFORMIN HCL [Suspect]
     Indication: INCORRECT DOSE ADMINISTERED

REACTIONS (28)
  - ABDOMINAL PAIN [None]
  - AMENORRHOEA [None]
  - BLOOD CALCIUM DECREASED [None]
  - BLOOD CHLORIDE DECREASED [None]
  - BLOOD GLUCOSE DECREASED [None]
  - BLOOD MAGNESIUM DECREASED [None]
  - BLOOD PHOSPHORUS DECREASED [None]
  - BLOOD SODIUM DECREASED [None]
  - CONFUSIONAL STATE [None]
  - DISSEMINATED INTRAVASCULAR COAGULATION [None]
  - DRUG ABUSE [None]
  - DYSPNOEA [None]
  - ELECTROCARDIOGRAM CHANGE [None]
  - FATIGUE [None]
  - HAEMODIALYSIS [None]
  - HEPATIC FUNCTION ABNORMAL [None]
  - HYPERVENTILATION [None]
  - HYPOTENSION [None]
  - HYPOTHERMIA [None]
  - HYPOVOLAEMIA [None]
  - LACTIC ACIDOSIS [None]
  - NAUSEA [None]
  - OVERDOSE [None]
  - POOR PERIPHERAL CIRCULATION [None]
  - RENAL FAILURE ACUTE [None]
  - SELF-MEDICATION [None]
  - TACHYCARDIA [None]
  - VOMITING [None]
